FAERS Safety Report 10053160 (Version 1)
Quarter: 2014Q2

REPORT INFORMATION
  Report Type: Spontaneous
  Country: US (occurrence: US)
  Receive Date: 20140402
  Receipt Date: 20140402
  Transmission Date: 20141212
  Serious: Yes (Life-Threatening)
  Sender: FDA-Public Use
  Company Number: US-GLAXOSMITHKLINE-A1061035A

PATIENT
  Age: 57 Year
  Sex: Female
  Weight: 97.7 kg

DRUGS (4)
  1. ARZERRA [Suspect]
     Indication: LEUKAEMIA
     Dosage: 300MG UNKNOWN
     Route: 042
     Dates: start: 20140123, end: 20140123
  2. SOLU-CORTEF [Concomitant]
     Indication: PREMEDICATION
     Dosage: 50MG UNKNOWN
     Route: 042
     Dates: start: 20140123, end: 20140123
  3. TYLENOL [Concomitant]
     Indication: PREMEDICATION
     Dosage: 650MG UNKNOWN
     Route: 048
     Dates: start: 20140123, end: 20140123
  4. BENADRYL [Concomitant]
     Indication: PREMEDICATION
     Dosage: 50MG UNKNOWN
     Route: 048
     Dates: start: 20140123, end: 20140123

REACTIONS (7)
  - Adverse drug reaction [Unknown]
  - Flushing [Recovered/Resolved]
  - Heart rate increased [Recovered/Resolved]
  - Anxiety [Recovered/Resolved]
  - Chest discomfort [Recovered/Resolved]
  - Urticaria [Recovered/Resolved]
  - Pruritus [Recovered/Resolved]
